FAERS Safety Report 5595974-X (Version None)
Quarter: 2008Q1

REPORT INFORMATION
  Report Type: 
  Country: None (occurrence: None)
  Receive Date: 20080118
  Receipt Date: 20070730
  Transmission Date: 20080703
  Serious: Yes (Disabling, Other)
  Sender: FDA-Public Use
  Company Number: US-ASTRAZENECA-2007UW07541

PATIENT
  Age: 17337 Day
  Sex: Female
  Weight: 118.2 kg

DRUGS (35)
  1. SEROQUEL [Suspect]
     Indication: SLEEP DISORDER
     Route: 048
     Dates: start: 20030101
  2. EFFEXOR [Concomitant]
  3. TOPAMAX [Concomitant]
  4. LEXAPRO [Concomitant]
  5. XANAX [Concomitant]
  6. ZETIA [Concomitant]
  7. FUROSEMIDE [Concomitant]
  8. POTASSIUM CHLORIDE [Concomitant]
  9. WARFARIN SODIUM [Concomitant]
  10. METOCLOPRAMIDE [Concomitant]
  11. LIPITOR [Concomitant]
  12. NIASPAN [Concomitant]
  13. TOPROL-XL [Concomitant]
  14. KLOR-CON [Concomitant]
  15. ACTOS [Concomitant]
  16. ACETAMINOPHEN AND HYDROCODONE BITARTRATE [Concomitant]
  17. PROPOXYPHENE NAPSYLATE AND ACETAMINOPHEN [Concomitant]
  18. FERROUS SULFATE [Concomitant]
  19. GABAPENTIN [Concomitant]
  20. SULFAMETHOXAZOLE + TRIMETHOPRIM [Concomitant]
  21. OXYCODONE AND ACETAMINOPHEN [Concomitant]
  22. CILOSTAZOL [Concomitant]
  23. CLONAZEPAM [Concomitant]
  24. NITROGLYCERIN [Concomitant]
  25. LISINOPRIL [Concomitant]
  26. WELCHOL [Concomitant]
  27. VYTORIN [Concomitant]
  28. SIMVASTATIN [Concomitant]
  29. ISOSORBIDE DINITRATE [Concomitant]
  30. PREVACID [Concomitant]
  31. PLAVIX [Concomitant]
  32. VERAPAMIL [Concomitant]
  33. RANITIDINE [Concomitant]
  34. DICLOFENAC [Concomitant]
  35. TIZANIDINE HCL [Concomitant]

REACTIONS (15)
  - ANXIETY [None]
  - BLINDNESS [None]
  - BRONCHITIS [None]
  - CEREBROVASCULAR ACCIDENT [None]
  - DIABETES MELLITUS [None]
  - DIABETIC NEUROPATHY [None]
  - FEMORAL ARTERIAL STENOSIS [None]
  - HAEMORRHAGE [None]
  - OBESITY [None]
  - PAIN IN EXTREMITY [None]
  - RENAL DISORDER [None]
  - SKIN ULCER [None]
  - THROMBOSIS [None]
  - UPPER RESPIRATORY TRACT INFECTION [None]
  - WEIGHT DECREASED [None]
